FAERS Safety Report 8812247 (Version 1)
Quarter: 2012Q4

REPORT INFORMATION
  Report Type: Spontaneous
  Country: GB (occurrence: None)
  Receive Date: 20120925
  Receipt Date: 20120925
  Transmission Date: 20130627
  Serious: Yes (Other)
  Sender: FDA-Public Use
  Company Number: GER/UKI/12/0025915

PATIENT
  Age: 69 Year
  Sex: Male

DRUGS (2)
  1. FLUOXETINE [Suspect]
     Indication: DRUG USE FOR UNKNOWN INDICATION
  2. SIMVASTATIN (SIMVASTATIN) [Concomitant]

REACTIONS (3)
  - Nausea [None]
  - Insomnia [None]
  - Depressed level of consciousness [None]
